FAERS Safety Report 13578873 (Version 1)
Quarter: 2017Q2

REPORT INFORMATION
  Report Type: Spontaneous
  Country: US (occurrence: US)
  Receive Date: 20170524
  Receipt Date: 20170524
  Transmission Date: 20170830
  Serious: Yes (Other)
  Sender: FDA-Public Use
  Company Number: None

PATIENT
  Age: 73 Year
  Sex: Female
  Weight: 71.73 kg

DRUGS (1)
  1. METHOTREXATE 2.5MG GENERIC [Suspect]
     Active Substance: METHOTREXATE SODIUM
     Indication: RHEUMATOID ARTHRITIS
     Route: 048

REACTIONS (3)
  - Viral upper respiratory tract infection [None]
  - Oral mucosal blistering [None]
  - Influenza like illness [None]

NARRATIVE: CASE EVENT DATE: 20170523
